FAERS Safety Report 15134594 (Version 2)
Quarter: 2018Q3

REPORT INFORMATION
  Report Type: Spontaneous
  Country: IS (occurrence: IS)
  Receive Date: 20180712
  Receipt Date: 20180829
  Transmission Date: 20181010
  Serious: Yes (Other)
  Sender: FDA-Public Use
  Company Number: IS-TEVA-2018-IS-922635

PATIENT
  Age: 79 Year
  Sex: Male

DRUGS (9)
  1. SELOKEN ZOC 47,5 MG FOR?AT?FLUR [Concomitant]
     Dosage: 47.5 MILLIGRAM DAILY;
  2. GLIMERYL 3 MG T?FLUR [Concomitant]
     Dosage: 3 MILLIGRAM DAILY; 1 TABLET WITH DINNER
  3. HJARTAMAGN?L 75 MG S?RU?OLNAR T?FLUR [Concomitant]
     Active Substance: ASPIRIN
     Dosage: 75 MILLIGRAM DAILY; 1 TABLET DAILY
  4. ATACOR 20 MG FILMUH??A?AR T?FLUR [Concomitant]
     Dosage: 20 MILLIGRAM DAILY; 1 X 1
  5. METFORMIN ACTAVIS 500 MG FILMUH??A?AR T?FLUR [Concomitant]
     Dosage: 1000 MILLIGRAM DAILY; 1 TABLET TWICE PER DAY WITH LUNCH AND DINNER
  6. SERETIDE DISKUS 50 MICROGRAM/500 MICROGRAM [Concomitant]
     Dosage: 1 SUCTION ONCE DAILY
  7. NEOTIGASON [Suspect]
     Active Substance: ACITRETIN
     Indication: PSORIASIS
     Dosage: 10 MILLIGRAM DAILY;
     Dates: start: 20160914
  8. STILNOCT 10 MG FILMUH??A?AR T?FLUR [Concomitant]
     Dosage: 10 MILLIGRAM DAILY; 1 TABLET BEFORE SLEEP
  9. PRESMIN 50 MG FILMUH??A?AR T?FLUR. [Concomitant]
     Dosage: 50 MILLIGRAM DAILY; 1 X 1

REACTIONS (2)
  - Cough [Unknown]
  - Sputum purulent [Recovering/Resolving]

NARRATIVE: CASE EVENT DATE: 201710
